FAERS Safety Report 13539339 (Version 1)
Quarter: 2017Q2

REPORT INFORMATION
  Report Type: Spontaneous
  Country: US (occurrence: US)
  Receive Date: 20170512
  Receipt Date: 20170512
  Transmission Date: 20170830
  Serious: Yes (Death, Hospitalization)
  Sender: FDA-Public Use
  Company Number: US-MALLINCKRODT-T201701974

PATIENT
  Age: 49 Year
  Sex: Male

DRUGS (4)
  1. MELATONIN [Suspect]
     Active Substance: MELATONIN
     Indication: PRODUCT USED FOR UNKNOWN INDICATION
     Dosage: UNK, OVER ONE DAY
     Route: 048
  2. ALCOHOL. [Concomitant]
     Active Substance: ALCOHOL
  3. HYDROCODONE/ACETAMINOPHEN [Suspect]
     Active Substance: ACETAMINOPHEN\HYDROCODONE
     Indication: PRODUCT USED FOR UNKNOWN INDICATION
     Dosage: 7.5/325, 40 TABLETS OVER 1 DAY
     Route: 048
  4. ACETYLSALICYLIC ACID [Suspect]
     Active Substance: ASPIRIN
     Indication: PRODUCT USED FOR UNKNOWN INDICATION
     Dosage: UNK, OVER ONE DAY
     Route: 048

REACTIONS (7)
  - Seizure [Unknown]
  - Tachycardia [Unknown]
  - Pyrexia [Unknown]
  - Suicide attempt [Unknown]
  - Tachypnoea [Unknown]
  - Intentional overdose [Unknown]
  - Cardiac arrest [Fatal]
